FAERS Safety Report 19180960 (Version 1)
Quarter: 2021Q2

REPORT INFORMATION
  Report Type: Spontaneous
  Country: US (occurrence: US)
  Receive Date: 20210426
  Receipt Date: 20210426
  Transmission Date: 20210717
  Serious: No
  Sender: FDA-Public Use
  Company Number: US-BAYER-2021-130273

PATIENT
  Age: 69 Year
  Sex: Female

DRUGS (3)
  1. LOSARTAN. [Concomitant]
     Active Substance: LOSARTAN
     Dosage: UNK UNK, QD
  2. CLIMARA [Suspect]
     Active Substance: ESTRADIOL
     Dosage: UNK, OW
     Route: 062
  3. BUPROPION. [Concomitant]
     Active Substance: BUPROPION
     Dosage: UNK UNK, QD

REACTIONS (3)
  - Product dose omission issue [None]
  - Device adhesion issue [None]
  - Device material issue [None]
